FAERS Safety Report 6185616-7 (Version None)
Quarter: 2009Q2

REPORT INFORMATION
  Report Type: 
  Country: None (occurrence: None)
  Receive Date: 20090511
  Receipt Date: 20090429
  Transmission Date: 20091009
  Serious: Yes (Other)
  Sender: FDA-Public Use
  Company Number: US-PFIZER INC-2009209535

PATIENT
  Sex: Male
  Weight: 111.13 kg

DRUGS (1)
  1. CHANTIX [Suspect]
     Indication: SMOKING CESSATION THERAPY
     Dosage: 1 MG, 2X/DAY
     Route: 048
     Dates: start: 20090109, end: 20090401

REACTIONS (13)
  - ABASIA [None]
  - CLAVICLE FRACTURE [None]
  - CONVULSION [None]
  - EYE PAIN [None]
  - FACIAL BONES FRACTURE [None]
  - FALL [None]
  - HEADACHE [None]
  - LOSS OF CONSCIOUSNESS [None]
  - MOUTH ULCERATION [None]
  - RIB FRACTURE [None]
  - SUICIDE ATTEMPT [None]
  - TOOTHACHE [None]
  - WEIGHT DECREASED [None]
